FAERS Safety Report 21773224 (Version 1)
Quarter: 2022Q4

REPORT INFORMATION
  Report Type: Spontaneous
  Country: US (occurrence: None)
  Receive Date: 20221223
  Receipt Date: 20221223
  Transmission Date: 20230113
  Serious: Yes (Hospitalization)
  Sender: FDA-Public Use
  Company Number: None

PATIENT
  Sex: Female

DRUGS (7)
  1. FORTEO [Suspect]
     Active Substance: TERIPARATIDE
     Indication: Osteoporosis
     Dosage: FREQUENCY : DAILY;?
     Route: 058
     Dates: start: 20220517
  2. ALBUTEROL\IPRATROPIUM [Concomitant]
     Active Substance: ALBUTEROL\IPRATROPIUM
  3. METOPROLOL [Concomitant]
     Active Substance: METOPROLOL
  4. BUPROPION [Concomitant]
     Active Substance: BUPROPION
  5. LOSARTAN [Concomitant]
     Active Substance: LOSARTAN
  6. PRAVASTATIN [Concomitant]
     Active Substance: PRAVASTATIN
  7. TRETINOIN [Concomitant]
     Active Substance: TRETINOIN

REACTIONS (1)
  - Heart rate irregular [None]
